FAERS Safety Report 5027037-6 (Version None)
Quarter: 2006Q2

REPORT INFORMATION
  Report Type: 
  Country: None (occurrence: None)
  Receive Date: 20060609
  Receipt Date: 20060530
  Transmission Date: 20061013
  Serious: Yes (Other)
  Sender: FDA-Public Use
  Company Number: 2006071392

PATIENT
  Sex: Male

DRUGS (1)
  1. LYRICA [Suspect]
     Indication: DIABETIC NEUROPATHY
     Dosage: 600 MG (300 MG, 2 IN 1D), ORAL
     Route: 048

REACTIONS (7)
  - ALCOHOL USE [None]
  - DIABETES MELLITUS INADEQUATE CONTROL [None]
  - DRUG ABUSER [None]
  - DRUG DEPENDENCE [None]
  - DRUG TOXICITY [None]
  - GLYCOSYLATED HAEMOGLOBIN INCREASED [None]
  - INTENTIONAL DRUG MISUSE [None]
